FAERS Safety Report 4710493-8 (Version None)
Quarter: 2005Q3

REPORT INFORMATION
  Report Type: 
  Country: None (occurrence: None)
  Receive Date: 20050707
  Receipt Date: 20050628
  Transmission Date: 20060218
  Serious: Yes (Other)
  Sender: FDA-Public Use
  Company Number: 214474

PATIENT
  Age: 47 Year
  Sex: Male

DRUGS (12)
  1. RITUXAN [Suspect]
     Indication: NON-HODGKIN'S LYMPHOMA
     Dosage: 600 MG, INTRAVENOUS
     Route: 042
     Dates: start: 20040405, end: 20040405
  2. METHOTREXATE [Suspect]
     Indication: NON-HODGKIN'S LYMPHOMA
     Dosage: 15 MG, INTRAVENOUS
     Route: 042
     Dates: start: 20040405, end: 20040405
  3. CYTARABINE [Suspect]
     Indication: NON-HODGKIN'S LYMPHOMA
     Dosage: 15 MG                      INTRAVENOUS
     Route: 042
     Dates: start: 20040405, end: 20040405
  4. HYDROCORTISONE SODIUM SUCCINATE [Suspect]
     Indication: NON-HODGKIN'S LYMPHOMA
     Dosage: 15 MG
     Dates: start: 20040405, end: 20040405
  5. RABEPRAZOLE SODIUM [Concomitant]
  6. MONTELUKAST    (MONTELUKAST SODIUM) [Concomitant]
  7. CEFOPERAZONE, SULBACTAM [Concomitant]
  8. CYCLOPHOSPHAMIDE [Concomitant]
  9. PIRARUBICIN       (PIRARUBICIN) [Concomitant]
  10. VINCRISTINE [Concomitant]
  11. PREDNISONE [Concomitant]
  12. MITOXANTRONE [Concomitant]

REACTIONS (2)
  - CONVULSION [None]
  - PYREXIA [None]
